FAERS Safety Report 4598136-8 (Version None)
Quarter: 2005Q1

REPORT INFORMATION
  Report Type: 
  Country: None (occurrence: None)
  Receive Date: 20050301
  Receipt Date: 20050301
  Transmission Date: 20050727
  Serious: Yes (Hospitalization)
  Sender: FDA-Public Use
  Company Number: None

PATIENT
  Age: 74 Year
  Sex: Male
  Weight: 66.7 kg

DRUGS (8)
  1. ALLOPURINOL [Suspect]
     Indication: GOUT
     Dosage: 300 MG PO DAILY
     Route: 048
     Dates: start: 20041023, end: 20041204
  2. TAMSULOSIN [Concomitant]
  3. DIGOXIN [Concomitant]
  4. IPRATROPIUM BROMIDE [Concomitant]
  5. ALBUTEROL [Concomitant]
  6. SIMVASTATIN [Concomitant]
  7. FUROSEMIDE [Concomitant]
  8. LISINOPRIL [Concomitant]

REACTIONS (6)
  - EOSINOPHIL COUNT ABNORMAL [None]
  - OEDEMA PERIPHERAL [None]
  - PRURITUS [None]
  - RASH GENERALISED [None]
  - SKIN EXFOLIATION [None]
  - SWELLING FACE [None]
